FAERS Safety Report 24872033 (Version 1)
Quarter: 2025Q1

REPORT INFORMATION
  Report Type: Spontaneous
  Country: ID (occurrence: ID)
  Receive Date: 20250122
  Receipt Date: 20250122
  Transmission Date: 20250409
  Serious: Yes (Hospitalization, Other)
  Sender: ABBVIE
  Company Number: ID-RICHTER-2025-GR-000396

PATIENT
  Age: 17 Year
  Sex: Male

DRUGS (2)
  1. CARIPRAZINE HYDROCHLORIDE [Suspect]
     Active Substance: CARIPRAZINE HYDROCHLORIDE
     Indication: Product use in unapproved indication
     Route: 048
     Dates: start: 2024
  2. BRINTELLIX [Concomitant]
     Active Substance: VORTIOXETINE HYDROBROMIDE
     Indication: Product used for unknown indication

REACTIONS (6)
  - Tremor [Recovering/Resolving]
  - Product use issue [Unknown]
  - Muscle rigidity [Recovering/Resolving]
  - Dystonia [Recovering/Resolving]
  - Product use in unapproved indication [Unknown]
  - Musculoskeletal stiffness [Recovering/Resolving]

NARRATIVE: CASE EVENT DATE: 20240101
